FAERS Safety Report 4502138-7 (Version None)
Quarter: 2004Q4

REPORT INFORMATION
  Report Type: 
  Country: None (occurrence: None)
  Receive Date: 20041116
  Receipt Date: 20041109
  Transmission Date: 20050328
  Serious: Yes (Disabling, Other)
  Sender: FDA-Public Use
  Company Number: GB-BRISTOL-MYERS SQUIBB COMPANY-12766002

PATIENT
  Age: 56 Year
  Sex: Female

DRUGS (4)
  1. CYCLOPHOSPHAMIDE [Suspect]
     Indication: BREAST CANCER
     Route: 042
  2. METHOTREXATE [Suspect]
     Indication: BREAST CANCER
     Route: 042
  3. TAMOXIFEN CITRATE [Suspect]
     Indication: BREAST CANCER
  4. FLUOROURACIL [Suspect]
     Indication: BREAST CANCER
     Route: 040

REACTIONS (1)
  - ARTERIAL THROMBOSIS [None]
